FAERS Safety Report 14477054 (Version 1)
Quarter: 2018Q1

REPORT INFORMATION
  Report Type: Report from Study
  Country: US (occurrence: US)
  Receive Date: 20180201
  Receipt Date: 20180201
  Transmission Date: 20180509
  Serious: No
  Sender: FDA-Public Use
  Company Number: US-EXELIXIS-CABO-17009911

PATIENT
  Age: 73 Year
  Sex: Male

DRUGS (7)
  1. AMLODIPINE [Concomitant]
     Active Substance: AMLODIPINE BESYLATE
  2. RANITIDINE. [Concomitant]
     Active Substance: RANITIDINE
  3. LORAZEPAM. [Concomitant]
     Active Substance: LORAZEPAM
  4. CABOMETYX [Suspect]
     Active Substance: CABOZANTINIB S-MALATE
     Indication: RENAL CANCER
     Dosage: 40 MG, THEN ALTERNATE WITH 20 MG
     Route: 048
     Dates: start: 20161105
  5. TRAMADOL. [Concomitant]
     Active Substance: TRAMADOL
  6. MEGESTROL [Concomitant]
     Active Substance: MEGESTROL
  7. OXYCODONE/APAP [Concomitant]
     Active Substance: ACETAMINOPHEN\OXYCODONE HYDROCHLORIDE

REACTIONS (1)
  - Joint swelling [Unknown]

NARRATIVE: CASE EVENT DATE: 20170721
